FAERS Safety Report 8220325-1 (Version None)
Quarter: 2012Q1

REPORT INFORMATION
  Report Type: 
  Country: None (occurrence: None)
  Receive Date: 20120320
  Receipt Date: 20120309
  Transmission Date: 20120608
  Serious: Yes (Other)
  Sender: FDA-Public Use
  Company Number: US-RB-036308-12

PATIENT
  Age: 19 Year
  Sex: Female

DRUGS (1)
  1. MUCINEX FAST MAX ADULT COLD FLU THROAT [Suspect]
     Indication: PRODUCT USED FOR UNKNOWN INDICATION
     Route: 048
     Dates: start: 20120308

REACTIONS (5)
  - SWELLING FACE [None]
  - PRURITUS [None]
  - LIP SWELLING [None]
  - EYE SWELLING [None]
  - DYSPNOEA [None]
